FAERS Safety Report 12422680 (Version 2)
Quarter: 2016Q2

REPORT INFORMATION
  Report Type: Spontaneous
  Country: CN (occurrence: CN)
  Receive Date: 20160601
  Receipt Date: 20160603
  Transmission Date: 20160815
  Serious: Yes (Other)
  Sender: FDA-Public Use
  Company Number: CN-JNJFOC-20160523581

PATIENT

DRUGS (3)
  1. MOTRIN [Suspect]
     Active Substance: IBUPROFEN
     Indication: PATENT DUCTUS ARTERIOSUS
     Dosage: AFTER 24 HOUR
     Route: 048
  2. MOTRIN [Suspect]
     Active Substance: IBUPROFEN
     Indication: PATENT DUCTUS ARTERIOSUS
     Dosage: AFTER 48 HOURS
     Route: 048
  3. MOTRIN [Suspect]
     Active Substance: IBUPROFEN
     Indication: PATENT DUCTUS ARTERIOSUS
     Dosage: AFTER 48 HOURS
     Route: 048

REACTIONS (7)
  - Abdominal distension [Recovered/Resolved]
  - Renal impairment [Recovered/Resolved]
  - Oliguria [Recovered/Resolved]
  - Off label use [Unknown]
  - Gastrointestinal disorder [Recovered/Resolved]
  - Product use issue [Unknown]
  - Intraventricular haemorrhage [Not Recovered/Not Resolved]
